FAERS Safety Report 6188652-X (Version None)
Quarter: 2009Q2

REPORT INFORMATION
  Report Type: 
  Country: None (occurrence: None)
  Receive Date: 20090513
  Receipt Date: 20090502
  Transmission Date: 20091009
  Serious: Yes (Life-Threatening, Congenital Anomaly)
  Sender: FDA-Public Use
  Company Number: US-ELI_LILLY_AND_COMPANY-US200712004524

PATIENT
  Sex: Female
  Weight: 2.721 kg

DRUGS (1)
  1. PROZAC [Suspect]
     Dosage: 20 MG, DAILY (1/D)
     Route: 064
     Dates: end: 19981101

REACTIONS (17)
  - BRONCHIOLITIS [None]
  - CHOKING [None]
  - CONGENITAL CARDIOVASCULAR ANOMALY [None]
  - COUGH [None]
  - DIARRHOEA [None]
  - DRUG EXPOSURE DURING PREGNANCY [None]
  - DRUG HYPERSENSITIVITY [None]
  - DYSPNOEA [None]
  - LACRIMATION INCREASED [None]
  - NASAL CONGESTION [None]
  - OROPHARYNGEAL PAIN [None]
  - PRODUCTIVE COUGH [None]
  - PULMONARY CONGESTION [None]
  - PYREXIA [None]
  - RHINORRHOEA [None]
  - SNEEZING [None]
  - VOMITING [None]
